FAERS Safety Report 10296928 (Version 2)
Quarter: 2014Q3

REPORT INFORMATION
  Report Type: Report from Study
  Country: CA (occurrence: CA)
  Receive Date: 20140711
  Receipt Date: 20140711
  Transmission Date: 20150326
  Serious: Yes (Hospitalization, Other)
  Sender: FDA-Public Use
  Company Number: CA-JNJFOC-20130714435

PATIENT
  Age: 60 Year
  Sex: Male
  Weight: 89.36 kg

DRUGS (5)
  1. VOLTAREN [Suspect]
     Active Substance: DICLOFENAC SODIUM
     Indication: PRODUCT USED FOR UNKNOWN INDICATION
     Dosage: DOSAGE: 15 (UNITS UNSPECIFIED)
     Route: 065
  2. METHOTREXATE [Concomitant]
     Active Substance: METHOTREXATE
     Route: 065
     Dates: start: 2013
  3. ANSAID [Suspect]
     Active Substance: FLURBIPROFEN
     Indication: PRODUCT USED FOR UNKNOWN INDICATION
     Route: 065
  4. METHOTREXATE [Concomitant]
     Active Substance: METHOTREXATE
     Route: 065
  5. SIMPONI [Suspect]
     Active Substance: GOLIMUMAB
     Indication: RHEUMATOID ARTHRITIS
     Dosage: TREATED FOR 3 YEARS
     Route: 058
     Dates: start: 201110

REACTIONS (4)
  - Arthropathy [Unknown]
  - Rheumatoid arthritis [Unknown]
  - Myocardial infarction [Unknown]
  - Knee operation [Unknown]

NARRATIVE: CASE EVENT DATE: 201202
